FAERS Safety Report 5443669-5 (Version None)
Quarter: 2007Q3

REPORT INFORMATION
  Report Type: 
  Country: None (occurrence: None)
  Receive Date: 20070905
  Receipt Date: 20070829
  Transmission Date: 20080115
  Serious: Yes (Death)
  Sender: FDA-Public Use
  Company Number: HQWYE897229AUG07

PATIENT
  Age: 45 Year
  Sex: Female

DRUGS (2)
  1. TYGACIL [Suspect]
     Indication: ABDOMINAL ABSCESS
     Dosage: 100 MG LOADING DOSE, THEN 50 MG EVERY 12 HOURS
     Route: 042
  2. COLISTIN SULFATE [Concomitant]
     Dosage: UNKNOWN

REACTIONS (1)
  - DEATH [None]
